FAERS Safety Report 7328984-2 (Version None)
Quarter: 2011Q1

REPORT INFORMATION
  Report Type: 
  Country: None (occurrence: None)
  Receive Date: 20110303
  Receipt Date: 20110221
  Transmission Date: 20110831
  Serious: Yes (Other)
  Sender: FDA-Public Use
  Company Number: FI-JNJFOC-20110206086

PATIENT
  Sex: Female

DRUGS (3)
  1. REMICADE [Suspect]
     Indication: JUVENILE ARTHRITIS
     Route: 042
  2. FOLIC ACID [Concomitant]
     Route: 065
  3. METHOTREXATE [Concomitant]
     Route: 048

REACTIONS (1)
  - AUTOIMMUNE HEPATITIS [None]
